FAERS Safety Report 11924027 (Version 4)
Quarter: 2016Q1

REPORT INFORMATION
  Report Type: Report from Study
  Country: US (occurrence: US)
  Receive Date: 20160118
  Receipt Date: 20160303
  Transmission Date: 20160526
  Serious: Yes (Hospitalization)
  Sender: FDA-Public Use
  Company Number: US-JNJFOC-20160106126

PATIENT
  Age: 81 Year
  Sex: Male

DRUGS (15)
  1. XARELTO [Concomitant]
     Active Substance: RIVAROXABAN
  2. LEXAPRO [Concomitant]
     Active Substance: ESCITALOPRAM OXALATE
  3. ZOFRAN [Concomitant]
     Active Substance: ONDANSETRON HYDROCHLORIDE
  4. VITAMIN D [Concomitant]
     Active Substance: CHOLECALCIFEROL
  5. SPIRONOLACTONE. [Concomitant]
     Active Substance: SPIRONOLACTONE
  6. DIGOXIN. [Concomitant]
     Active Substance: DIGOXIN
  7. ALLOPURINOL. [Concomitant]
     Active Substance: ALLOPURINOL
  8. LASIX [Concomitant]
     Active Substance: FUROSEMIDE
  9. IMBRUVICA [Suspect]
     Active Substance: IBRUTINIB
     Indication: CHRONIC LYMPHOCYTIC LEUKAEMIA
     Dosage: CLARIFICATION REQUIRED FOR THE FREQUENCY OF DOSE.
     Route: 048
     Dates: end: 2016
  10. LOSARTAN. [Concomitant]
     Active Substance: LOSARTAN
  11. VITAMINE C [Concomitant]
     Active Substance: ASCORBIC ACID
  12. IMBRUVICA [Suspect]
     Active Substance: IBRUTINIB
     Indication: CHRONIC LYMPHOCYTIC LEUKAEMIA
     Route: 048
     Dates: start: 201512
  13. CRESTOR [Concomitant]
     Active Substance: ROSUVASTATIN CALCIUM
  14. POTASSIUM [Concomitant]
     Active Substance: POTASSIUM
  15. PRESERVISION [Concomitant]
     Active Substance: MINERALS\VITAMINS

REACTIONS (5)
  - Fatigue [Unknown]
  - Disease progression [Unknown]
  - Incorrect dose administered [Recovered/Resolved]
  - Haemoglobin decreased [Recovering/Resolving]
  - Off label use [Unknown]

NARRATIVE: CASE EVENT DATE: 201512
